FAERS Safety Report 5399528-X (Version None)
Quarter: 2007Q3

REPORT INFORMATION
  Report Type: 
  Country: None (occurrence: None)
  Receive Date: 20070727
  Receipt Date: 20070716
  Transmission Date: 20080115
  Serious: Yes (Death, Hospitalization, Other)
  Sender: FDA-Public Use
  Company Number: US-PFIZER INC-2006149277

PATIENT
  Sex: Female
  Weight: 47.6 kg

DRUGS (4)
  1. BEXTRA [Suspect]
     Indication: OSTEOARTHRITIS
     Route: 048
     Dates: start: 20030212, end: 20031229
  2. BEXTRA [Suspect]
     Indication: FIBROMYALGIA
  3. VIOXX [Suspect]
     Indication: OSTEOARTHRITIS
     Route: 048
     Dates: start: 20001211, end: 20030101
  4. VIOXX [Suspect]
     Indication: FIBROMYALGIA

REACTIONS (1)
  - MYOCARDIAL INFARCTION [None]
